FAERS Safety Report 10168252 (Version 1)
Quarter: 2014Q2

REPORT INFORMATION
  Report Type: Spontaneous
  Country: US (occurrence: US)
  Receive Date: 20140512
  Receipt Date: 20140512
  Transmission Date: 20141212
  Serious: No
  Sender: FDA-Public Use
  Company Number: US-009507513-1405USA005653

PATIENT
  Sex: Female

DRUGS (1)
  1. MIRALAX [Suspect]
     Indication: IRRITABLE BOWEL SYNDROME
     Dosage: UNK, QAM
     Route: 048

REACTIONS (1)
  - Rectal haemorrhage [Unknown]
